FAERS Safety Report 6539318-5 (Version None)
Quarter: 2010Q1

REPORT INFORMATION
  Report Type: 
  Country: None (occurrence: None)
  Receive Date: 20100115
  Receipt Date: 20100106
  Transmission Date: 20100710
  Serious: Yes (Hospitalization, Other)
  Sender: FDA-Public Use
  Company Number: US-JNJFOC-20100103786

PATIENT
  Sex: Female

DRUGS (3)
  1. TYLENOL (CAPLET) [Suspect]
     Route: 048
  2. TYLENOL (CAPLET) [Suspect]
     Indication: RHEUMATOID ARTHRITIS
     Dosage: USED AN UNKNOWN DOSE ^ROUTINELY^
     Route: 048
  3. HYDROCODONE [Concomitant]
     Route: 048

REACTIONS (6)
  - CONSTIPATION [None]
  - FALL [None]
  - GAIT DISTURBANCE [None]
  - HEART VALVE REPLACEMENT [None]
  - HIP FRACTURE [None]
  - PRODUCT QUALITY ISSUE [None]
